FAERS Safety Report 23817547 (Version 1)
Quarter: 2024Q2

REPORT INFORMATION
  Report Type: Spontaneous
  Country: US (occurrence: US)
  Receive Date: 20240505
  Receipt Date: 20240505
  Transmission Date: 20240715
  Serious: No
  Sender: FDA-Public Use
  Company Number: US-JNJFOC-20240490091

PATIENT
  Age: 44 Year
  Sex: Female

DRUGS (1)
  1. SPRAVATO [Suspect]
     Active Substance: ESKETAMINE
     Indication: Major depression
     Dosage: TWICE WEEKLY

REACTIONS (4)
  - Headache [Unknown]
  - Diarrhoea [Unknown]
  - Sensory disturbance [Unknown]
  - Mental disorder [Unknown]

NARRATIVE: CASE EVENT DATE: 20240429
